FAERS Safety Report 7002034-X (Version None)
Quarter: 2010Q3

REPORT INFORMATION
  Report Type: 
  Country: None (occurrence: None)
  Receive Date: 20100920
  Receipt Date: 20100910
  Transmission Date: 20110219
  Serious: Yes (Other)
  Sender: FDA-Public Use
  Company Number: US-AMGEN-QUU434209

PATIENT
  Sex: Male

DRUGS (8)
  1. ENBREL [Suspect]
     Indication: PSORIASIS
     Route: 058
     Dates: start: 20060401, end: 20090101
  2. ACITRETIN [Concomitant]
     Dates: start: 20050101
  3. PLAVIX [Concomitant]
  4. LISINOPRIL [Concomitant]
  5. SIMVASTATIN [Concomitant]
  6. INSULIN [Concomitant]
  7. COUMADIN [Concomitant]
  8. HYDROCODONE [Concomitant]

REACTIONS (1)
  - COLORECTAL CANCER [None]
